FAERS Safety Report 4687995-6 (Version None)
Quarter: 2005Q2

REPORT INFORMATION
  Report Type: 
  Country: None (occurrence: None)
  Receive Date: 20050608
  Receipt Date: 20050520
  Transmission Date: 20051028
  Serious: Yes (Other)
  Sender: FDA-Public Use
  Company Number: TRP_0134_2005

PATIENT
  Age: 42 Year
  Sex: Female

DRUGS (2)
  1. RIBASPHERE [Suspect]
     Indication: HEPATITIS C
     Dosage: DF, UNK; PO
     Route: 048
     Dates: start: 20050301
  2. PEG-INTRON [Suspect]
     Indication: HEPATITIS C
     Dosage: DF, UNK, SC
     Route: 058
     Dates: start: 20050301

REACTIONS (3)
  - DEHYDRATION [None]
  - MALAISE [None]
  - VOMITING [None]
